FAERS Safety Report 15977176 (Version 1)
Quarter: 2019Q1

REPORT INFORMATION
  Report Type: Spontaneous
  Country: US (occurrence: US)
  Receive Date: 20190218
  Receipt Date: 20190218
  Transmission Date: 20190418
  Serious: No
  Sender: FDA-Public Use
  Company Number: PHEH2019US006466

PATIENT
  Age: 15 Year
  Sex: Female

DRUGS (1)
  1. ILARIS [Suspect]
     Active Substance: CANAKINUMAB
     Route: 058
     Dates: start: 20161028

REACTIONS (3)
  - Body temperature increased [Unknown]
  - Urinary tract infection [Unknown]
  - Upper respiratory tract infection [Unknown]
